FAERS Safety Report 11877351 (Version 3)
Quarter: 2016Q4

REPORT INFORMATION
  Report Type: Spontaneous
  Country: IT (occurrence: IT)
  Receive Date: 20151229
  Receipt Date: 20161111
  Transmission Date: 20170206
  Serious: Yes (Death, Hospitalization, Other)
  Sender: FDA-Public Use
  Company Number: IT-GILEAD-2015-0189208

PATIENT
  Age: 70 Year
  Sex: Female

DRUGS (7)
  1. PANTOPRAZOL [Concomitant]
     Active Substance: PANTOPRAZOLE SODIUM
  2. LACTULOSE. [Concomitant]
     Active Substance: LACTULOSE
  3. CARDIOASPIRIN [Concomitant]
     Active Substance: ASPIRIN
  4. HARVONI [Suspect]
     Active Substance: LEDIPASVIR\SOFOSBUVIR
     Indication: CHRONIC HEPATITIS C
     Dosage: 1 DF, QD
     Route: 048
     Dates: start: 20150928, end: 20151214
  5. SEREUPIN [Concomitant]
     Active Substance: PAROXETINE HYDROCHLORIDE
  6. CARVEDILOL. [Concomitant]
     Active Substance: CARVEDILOL
  7. HARVONI [Suspect]
     Active Substance: LEDIPASVIR\SOFOSBUVIR
     Indication: HEPATIC CIRRHOSIS

REACTIONS (4)
  - Cardiac arrest [Fatal]
  - Confusional state [Fatal]
  - Disorientation [Fatal]
  - Dyslalia [Fatal]

NARRATIVE: CASE EVENT DATE: 20151209
